FAERS Safety Report 9908712 (Version 1)
Quarter: 2014Q1

REPORT INFORMATION
  Report Type: Spontaneous
  Country: US (occurrence: None)
  Receive Date: 20140212
  Receipt Date: 20140212
  Transmission Date: 20141002
  Serious: No
  Sender: FDA-Public Use
  Company Number: None

PATIENT
  Age: 10 Year
  Sex: Male

DRUGS (1)
  1. LISTERINE AGENT COOL BLUE BUBBLE BLAST [Suspect]
     Dates: start: 20070803

REACTIONS (2)
  - Product quality issue [None]
  - Malaise [None]
